FAERS Safety Report 19693079 (Version 1)
Quarter: 2021Q3

REPORT INFORMATION
  Report Type: Other
  Country: IT (occurrence: IT)
  Receive Date: 20210813
  Receipt Date: 20210813
  Transmission Date: 20211014
  Serious: Yes (Other)
  Sender: FDA-Public Use
  Company Number: IT-CELLTRION INC.-2021IT010753

PATIENT

DRUGS (1)
  1. INFLIXIMAB (UNKNOWN) [Suspect]
     Active Substance: INFLIXIMAB
     Indication: STILL^S DISEASE
     Dosage: UNK, DATE OF LAST ADMINISTRATION: 2015
     Route: 065

REACTIONS (5)
  - Pyrexia [Unknown]
  - Off label use [Unknown]
  - Muscle rigidity [Unknown]
  - Polyarthritis [Unknown]
  - Inflammation [Unknown]
